FAERS Safety Report 22379528 (Version 1)
Quarter: 2023Q2

REPORT INFORMATION
  Report Type: Spontaneous
  Country: IN (occurrence: IN)
  Receive Date: 20230529
  Receipt Date: 20230529
  Transmission Date: 20230721
  Serious: Yes (Death)
  Sender: FDA-Public Use
  Company Number: IN-PFIZER INC-2020003716

PATIENT
  Age: 68 Year
  Sex: Male

DRUGS (7)
  1. SUTENT [Suspect]
     Active Substance: SUNITINIB MALATE
     Indication: Metastatic renal cell carcinoma
     Dosage: 37.5 MG, CYCLIC (ONCE DAILY FOR 2 WEEKS ON AND 1 WEEK OFF)
     Route: 048
     Dates: start: 20191221
  2. SUTENT [Suspect]
     Active Substance: SUNITINIB MALATE
     Dosage: 37.5 MG, CYCLIC (1XDAY, X 1 WK, THEN 1 WK OFF OF 1/2, THEN 2 WKS ON (8/2 ON WKS), THEN 1 WK OFF)
  3. PREGABALIN [Concomitant]
     Active Substance: PREGABALIN
     Dosage: 75 MG, 1X/DAY (AT BEDTIME)
     Route: 048
  4. COBADEX [HYDROCORTISONE ACETATE] [Concomitant]
     Dosage: 1 CAPSULE, 1X/DAY
  5. BECOSULES [ASCORBIC ACID;VITAMIN B NOS] [Concomitant]
     Dosage: 1 CAPSULE, 1X/DAY
  6. ULTRACET [Concomitant]
     Active Substance: ACETAMINOPHEN\TRAMADOL HYDROCHLORIDE
     Indication: Pain
     Dosage: UNK
  7. PALMOTHOS [Concomitant]
     Dosage: UNK, 2X/DAY
     Route: 061

REACTIONS (5)
  - Death [Fatal]
  - Impaired healing [Unknown]
  - Blood sodium decreased [Unknown]
  - Blood thyroid stimulating hormone abnormal [Unknown]
  - Benign prostatic hyperplasia [Unknown]
